FAERS Safety Report 17972861 (Version 1)
Quarter: 2020Q3

REPORT INFORMATION
  Report Type: Spontaneous
  Country: US (occurrence: US)
  Receive Date: 20200701
  Receipt Date: 20200701
  Transmission Date: 20201103
  Serious: No
  Sender: FDA-Public Use
  Company Number: None

PATIENT
  Age: 55 Year
  Sex: Female
  Weight: 65.25 kg

DRUGS (1)
  1. TRAMADOL. [Suspect]
     Active Substance: TRAMADOL
     Indication: SYNOVIAL CYST
     Dosage: ?          QUANTITY:48 TABLET(S);?
     Route: 048
     Dates: start: 20200626, end: 20200630

REACTIONS (2)
  - Insomnia [None]
  - Stomatitis [None]

NARRATIVE: CASE EVENT DATE: 20200626
